FAERS Safety Report 17346957 (Version 1)
Quarter: 2020Q1

REPORT INFORMATION
  Report Type: Report from Study
  Country: US (occurrence: US)
  Receive Date: 20200129
  Receipt Date: 20200129
  Transmission Date: 20200409
  Serious: No
  Sender: FDA-Public Use
  Company Number: US-EXELIXIS-CABO-19022153

PATIENT
  Sex: Male

DRUGS (1)
  1. CABOMETYX [Suspect]
     Active Substance: CABOZANTINIB S-MALATE
     Indication: RENAL CANCER
     Dosage: 40 MG, QD
     Route: 048
     Dates: start: 20180815

REACTIONS (5)
  - Decreased appetite [Recovering/Resolving]
  - Nasal ulcer [Recovering/Resolving]
  - Weight decreased [Recovering/Resolving]
  - Skin ulcer [Recovering/Resolving]
  - Diarrhoea [Recovering/Resolving]
